FAERS Safety Report 21553658 (Version 1)
Quarter: 2022Q4

REPORT INFORMATION
  Report Type: Report from Study
  Country: US (occurrence: None)
  Receive Date: 20221104
  Receipt Date: 20221104
  Transmission Date: 20230112
  Serious: Yes (Other)
  Sender: FDA-Public Use
  Company Number: US-Merck Healthcare KGaA-9356883

PATIENT
  Age: 48 Year
  Sex: Male
  Weight: 132 kg

DRUGS (1)
  1. REBIF [Suspect]
     Active Substance: INTERFERON BETA-1A
     Indication: Multiple sclerosis
     Route: 058
     Dates: start: 20150312

REACTIONS (6)
  - Blepharospasm [Recovered/Resolved]
  - Eyelid sensory disorder [Unknown]
  - Hypoaesthesia oral [Recovered/Resolved]
  - Seizure [Unknown]
  - Multiple sclerosis relapse [Recovered/Resolved with Sequelae]
  - Multiple sclerosis [Unknown]

NARRATIVE: CASE EVENT DATE: 20220623
